FAERS Safety Report 8056020-1 (Version None)
Quarter: 2012Q1

REPORT INFORMATION
  Report Type: 
  Country: None (occurrence: None)
  Receive Date: 20120119
  Receipt Date: 20120109
  Transmission Date: 20120608
  Serious: Yes (Hospitalization, Other)
  Sender: FDA-Public Use
  Company Number: US-BAYER-2011-038754

PATIENT
  Sex: Female
  Weight: 77.098 kg

DRUGS (2)
  1. YAZ [Suspect]
     Indication: PREMENSTRUAL SYNDROME
     Dosage: UNK
     Route: 048
     Dates: start: 20070101, end: 20080101
  2. PREDNISOLONE [Concomitant]

REACTIONS (9)
  - DEEP VEIN THROMBOSIS [None]
  - PAIN [None]
  - GALLBLADDER DISORDER [None]
  - INJURY [None]
  - ANXIETY [None]
  - ANHEDONIA [None]
  - FEAR [None]
  - QUALITY OF LIFE DECREASED [None]
  - CHOLECYSTITIS CHRONIC [None]
